FAERS Safety Report 7827122-7 (Version None)
Quarter: 2011Q4

REPORT INFORMATION
  Report Type: 
  Country: None (occurrence: None)
  Receive Date: 20111018
  Receipt Date: 20111003
  Transmission Date: 20120403
  Serious: Yes (Hospitalization)
  Sender: FDA-Public Use
  Company Number: 1000024534

PATIENT
  Age: 60 Year
  Sex: Female

DRUGS (17)
  1. LITHIUM CARBONATE [Suspect]
     Dosage: 675 MG; 450 MG
     Dates: start: 20110913
  2. LITHIUM CARBONATE [Suspect]
     Dosage: 675 MG; 450 MG
     Dates: start: 20090101, end: 20110912
  3. CIRCADIN (MELATONIN) [Suspect]
     Dates: start: 20110801, end: 20110912
  4. MILNACIPRAN (MILNACIPRAN HYDROCHLORIDE) (CAPSULES) [Suspect]
     Dosage: 25 MG,ORAL; 50 MG, ORAL
     Route: 048
     Dates: start: 20110906, end: 20110907
  5. MILNACIPRAN (MILNACIPRAN HYDROCHLORIDE) (CAPSULES) [Suspect]
     Dosage: 25 MG,ORAL; 50 MG, ORAL
     Route: 048
     Dates: start: 20110908, end: 20110913
  6. RISPERDAL [Suspect]
     Dosage: 2-6 MG; 8 MG; 4 MG; 2 MG
     Dates: start: 20110917
  7. RISPERDAL [Suspect]
     Dosage: 2-6 MG; 8 MG; 4 MG; 2 MG
     Dates: start: 20110820, end: 20110912
  8. RISPERDAL [Suspect]
     Dosage: 2-6 MG; 8 MG; 4 MG; 2 MG
     Dates: start: 20110814, end: 20110819
  9. RISPERDAL [Suspect]
     Dosage: 2-6 MG; 8 MG; 4 MG; 2 MG
     Dates: start: 20110913, end: 20110916
  10. DOMINAL (PROTHIPENDLYL HYDROCHLORIDE) [Suspect]
     Dates: start: 20110818
  11. MIRTAZAPINE [Suspect]
     Dosage: 60 MG
     Dates: start: 20110701, end: 20110912
  12. LAMICTAL [Suspect]
     Dosage: 200 MG; 250 MG; 300 MG (300 MG); 200 MG
     Dates: start: 20110817, end: 20110829
  13. LAMICTAL [Suspect]
     Dosage: 200 MG; 250 MG; 300 MG (300 MG); 200 MG
     Dates: start: 20090101, end: 20110816
  14. LAMICTAL [Suspect]
     Dosage: 200 MG; 250 MG; 300 MG (300 MG); 200 MG
     Dates: start: 20110830, end: 20110913
  15. LAMICTAL [Suspect]
     Dosage: 200 MG; 250 MG; 300 MG (300 MG); 200 MG
     Dates: start: 20110914
  16. AKINETON [Suspect]
     Dates: start: 20110908, end: 20110913
  17. LORAZEPAM [Suspect]
     Dates: start: 20110813, end: 20110924

REACTIONS (9)
  - ATAXIA [None]
  - AGITATION [None]
  - MUSCLE RIGIDITY [None]
  - DELIRIUM [None]
  - DYSKINESIA [None]
  - CHILLS [None]
  - SEDATION [None]
  - OEDEMA PERIPHERAL [None]
  - TREMOR [None]
